FAERS Safety Report 11962313 (Version 1)
Quarter: 2016Q1

REPORT INFORMATION
  Report Type: Spontaneous
  Country: US (occurrence: US)
  Receive Date: 20160126
  Receipt Date: 20160126
  Transmission Date: 20160526
  Serious: Yes (Other)
  Sender: FDA-Public Use
  Company Number: US-ACTAVIS-2016-01140

PATIENT
  Age: 34 Year
  Sex: Female

DRUGS (2)
  1. HYDRALAZINE [Suspect]
     Active Substance: HYDRALAZINE HYDROCHLORIDE
     Indication: ESSENTIAL HYPERTENSION
     Dosage: 25 MG, BID
     Route: 065
  2. HYDROCHLOROTHIAZIDE. [Concomitant]
     Active Substance: HYDROCHLOROTHIAZIDE
     Indication: ESSENTIAL HYPERTENSION
     Dosage: 25 MG, BID
     Route: 065

REACTIONS (1)
  - Systemic lupus erythematosus [Recovered/Resolved]
